FAERS Safety Report 23545872 (Version 1)
Quarter: 2024Q1

REPORT INFORMATION
  Report Type: Spontaneous
  Country: FR (occurrence: FR)
  Receive Date: 20240220
  Receipt Date: 20240220
  Transmission Date: 20240409
  Serious: Yes (Life-Threatening)
  Sender: FDA-Public Use
  Company Number: FR-MYLANLABS-2024M1015756

PATIENT
  Age: 71 Year
  Sex: Male

DRUGS (1)
  1. GABAPENTIN [Suspect]
     Active Substance: GABAPENTIN
     Indication: Epilepsy
     Dosage: 1 DOSAGE FORM, BID  (2 CAPSULES PER DAY, 1 IN THE MORNING AND 1 IN THE EVENING)
     Route: 048
     Dates: start: 20231204

REACTIONS (3)
  - Disease risk factor [Unknown]
  - Off label use [Unknown]
  - Product availability issue [Unknown]

NARRATIVE: CASE EVENT DATE: 20231204
